FAERS Safety Report 4419481-2 (Version None)
Quarter: 2004Q3

REPORT INFORMATION
  Report Type: 
  Country: None (occurrence: None)
  Receive Date: 20040809
  Receipt Date: 20040203
  Transmission Date: 20050211
  Serious: No
  Sender: FDA-Public Use
  Company Number: US-GLAXOSMITHKLINE-A0496918A

PATIENT
  Age: 17 Year
  Sex: Male
  Weight: 47.7 kg

DRUGS (1)
  1. PAXIL [Suspect]
     Indication: DEPRESSION
     Route: 048
     Dates: start: 20030827, end: 20040128

REACTIONS (2)
  - AGITATION [None]
  - MENTAL IMPAIRMENT [None]
